FAERS Safety Report 8981277 (Version 2)
Quarter: 2013Q4

REPORT INFORMATION
  Report Type: Spontaneous
  Country: DK (occurrence: DK)
  Receive Date: 20121221
  Receipt Date: 20131220
  Transmission Date: 20140711
  Serious: Yes (Other)
  Sender: FDA-Public Use
  Company Number: DK-PFIZER INC-2012320858

PATIENT
  Age: 35 Year
  Sex: Male

DRUGS (1)
  1. DOSTINEX [Suspect]
     Indication: HYPERPROLACTINAEMIA
     Dosage: 4 X 0.5 MG, WEEKLY
     Route: 048
     Dates: start: 199710

REACTIONS (1)
  - Raynaud^s phenomenon [Not Recovered/Not Resolved]
